FAERS Safety Report 9335513 (Version 1)
Quarter: 2013Q2

REPORT INFORMATION
  Report Type: Spontaneous
  Country: US (occurrence: US)
  Receive Date: 20130605
  Receipt Date: 20130605
  Transmission Date: 20140414
  Serious: Yes (Death, Hospitalization)
  Sender: FDA-Public Use
  Company Number: US-GLAXOSMITHKLINE-A0784437A

PATIENT
  Age: 70 Year
  Sex: Male
  Weight: 95.5 kg

DRUGS (11)
  1. AVANDIA [Suspect]
     Indication: DIABETES MELLITUS
     Route: 048
     Dates: start: 2000, end: 20070306
  2. AVANDARYL [Suspect]
     Indication: DIABETES MELLITUS
     Route: 048
     Dates: start: 200611, end: 200703
  3. GLUCOPHAGE [Concomitant]
  4. PRANDIN [Concomitant]
  5. AMARYL [Concomitant]
  6. MICROZIDE [Concomitant]
  7. LIPITOR [Concomitant]
  8. TRICOR [Concomitant]
  9. CLARINEX [Concomitant]
  10. BABY ASPIRIN [Concomitant]
  11. VITAMIN B [Concomitant]

REACTIONS (6)
  - Myocardial infarction [Fatal]
  - Respiratory failure [Fatal]
  - Cardiac failure congestive [Unknown]
  - Macular oedema [Unknown]
  - Ischaemic cardiomyopathy [Unknown]
  - Cardiogenic shock [Unknown]
